FAERS Safety Report 8167475 (Version 11)
Quarter: 2013Q2

REPORT INFORMATION
  Report Type: Report from Study
  Country: DE (occurrence: DE)
  Receive Date: 20111004
  Receipt Date: 20130419
  Transmission Date: 20140414
  Serious: Yes (Hospitalization)
  Sender: FDA-Public Use
  Company Number: DE-ROCHE-796861

PATIENT
  Age: 45 Year
  Sex: Male

DRUGS (41)
  1. BLINDED ALEGLITAZAR [Suspect]
     Indication: CARDIOVASCULAR EVENT PROPHYLAXIS
     Dosage: LAST DOSE PRIOR TO HYPERKALAEMIA: 04/JUL/2011, HYPERTENSIVE CRISIS: 11/AUG/2011
     Route: 048
  2. TORASEMIDE [Suspect]
     Indication: PRODUCT USED FOR UNKNOWN INDICATION
     Route: 065
     Dates: start: 20100108, end: 20110509
  3. TORASEMIDE [Suspect]
     Route: 065
  4. SPIRONOLACTONE [Suspect]
     Indication: PRODUCT USED FOR UNKNOWN INDICATION
     Route: 065
     Dates: start: 20110504, end: 20110506
  5. SPIRONOLACTONE [Suspect]
     Route: 065
     Dates: start: 20110823, end: 20120603
  6. METFORMIN [Concomitant]
     Route: 065
     Dates: start: 20100213, end: 20110311
  7. ALLOPURINOL [Concomitant]
     Route: 065
     Dates: start: 20110108, end: 20111203
  8. ALLOPURINOL [Concomitant]
     Route: 065
     Dates: start: 20110109, end: 20110114
  9. ALLOPURINOL [Concomitant]
     Route: 065
  10. ALLOPURINOL [Concomitant]
     Route: 065
  11. ASPIRIN [Concomitant]
     Route: 065
  12. CLOPIDOGREL [Concomitant]
     Route: 065
  13. NEBILET [Concomitant]
     Route: 065
     Dates: start: 201012, end: 20120603
  14. AMLODIPIN [Concomitant]
     Route: 065
     Dates: start: 20100108, end: 20110315
  15. AMLODIPIN [Concomitant]
     Route: 065
     Dates: start: 20110509, end: 20111203
  16. AMLODIPIN [Concomitant]
     Route: 065
     Dates: start: 20110823, end: 20111203
  17. AMLODIPIN [Concomitant]
     Route: 065
     Dates: start: 20110111, end: 20110111
  18. AMLODIPIN [Concomitant]
     Dosage: SINGLE DOSE
     Route: 065
  19. AMLODIPIN [Concomitant]
     Route: 065
  20. INEGY [Concomitant]
     Dosage: 10/40MG DAILY
     Route: 065
  21. OMEPRAZOL [Concomitant]
     Route: 065
  22. LEVEMIR [Concomitant]
     Dosage: REPORTED AS LEVEMIR INSULIN
     Route: 065
  23. LIPROLOG [Concomitant]
     Route: 065
  24. OMEGA-3 ACID ETHYL ESTERS [Concomitant]
     Route: 065
     Dates: start: 20110312, end: 20110509
  25. VILDAGLIPTIN [Concomitant]
     Route: 065
     Dates: start: 20110312, end: 20110822
  26. ALISKIREN [Concomitant]
     Route: 065
     Dates: start: 20110318, end: 20111203
  27. HYDROCHLOROTHIAZIDE [Concomitant]
     Route: 065
     Dates: start: 20110401, end: 20110823
  28. CATAPRESSAN [Concomitant]
     Route: 065
     Dates: start: 20110509, end: 20110823
  29. NITROLINGUAL [Concomitant]
     Route: 065
     Dates: start: 20110509, end: 20110509
  30. NITROLINGUAL [Concomitant]
     Dosage: 4 PUFFS SINGLE DOSE
     Route: 065
     Dates: start: 20111120, end: 20111120
  31. DIOVAN [Concomitant]
     Route: 065
     Dates: start: 20110115, end: 20110317
  32. DIOVAN [Concomitant]
     Route: 065
     Dates: start: 20110509, end: 20110823
  33. TARGIN [Concomitant]
     Dosage: TDD REPORTED AS 5/2.5 MG
     Route: 065
     Dates: start: 20110906, end: 20111215
  34. TARGIN [Concomitant]
     Dosage: TDD REPORTED AS 5/2.5 MG
     Route: 065
     Dates: start: 20110906, end: 20111215
  35. TRAMABETA [Concomitant]
     Route: 065
     Dates: start: 20111216
  36. DELIX [Concomitant]
     Route: 065
     Dates: start: 20110109
  37. DELIX [Concomitant]
     Route: 065
     Dates: start: 20110108, end: 20110108
  38. PARACODEINE [Concomitant]
     Dosage: 25 DROPS AS REQUIRED
     Route: 065
     Dates: start: 20110329, end: 20110913
  39. CORDANUM [Concomitant]
     Route: 065
     Dates: start: 20120603
  40. BLOPRESS [Concomitant]
     Route: 065
     Dates: start: 20120603
  41. TRAMADOL [Concomitant]
     Route: 065
     Dates: start: 20111216

REACTIONS (1)
  - Carotid artery stenosis [Not Recovered/Not Resolved]
